FAERS Safety Report 8582081-7 (Version None)
Quarter: 2012Q3

REPORT INFORMATION
  Report Type: 
  Country: None (occurrence: None)
  Receive Date: 20120809
  Receipt Date: 20120806
  Transmission Date: 20120928
  Serious: Yes (Other)
  Sender: FDA-Public Use
  Company Number: US-PFIZER INC-2012145152

PATIENT
  Age: 8 Year
  Sex: Male
  Weight: 22.676 kg

DRUGS (6)
  1. AZITHROMYCIN [Concomitant]
     Dosage: 200 MG, DAILY
     Dates: end: 20120611
  2. CHILDREN'S ADVIL [Suspect]
     Indication: PYREXIA
     Dosage: UNK, EVERY 4 HRS
     Route: 048
     Dates: start: 20120601, end: 20120608
  3. CHILDREN'S ADVIL [Suspect]
     Indication: UPPER RESPIRATORY TRACT INFECTION
  4. CHILDREN'S ADVIL [Suspect]
     Indication: COUGH
  5. CHILDREN'S MOTRIN [Suspect]
     Indication: PYREXIA
     Dosage: UNK
     Dates: end: 20120501
  6. AZITHROMYCIN [Concomitant]
     Indication: UPPER RESPIRATORY TRACT INFECTION
     Dosage: 400 MG, DAILY
     Dates: start: 20120607

REACTIONS (9)
  - RASH GENERALISED [None]
  - LIP PAIN [None]
  - GINGIVAL PAIN [None]
  - INCORRECT DOSE ADMINISTERED [None]
  - PYREXIA [None]
  - BLISTER [None]
  - ORAL MUCOSAL BLISTERING [None]
  - INFECTION [None]
  - DRUG INEFFECTIVE [None]
